FAERS Safety Report 4676427-X (Version None)
Quarter: 2005Q2

REPORT INFORMATION
  Report Type: 
  Country: None (occurrence: None)
  Receive Date: 20050527
  Receipt Date: 20041216
  Transmission Date: 20051028
  Serious: Yes (Death, Hospitalization)
  Sender: FDA-Public Use
  Company Number: US-MERCK-0412USA02139

PATIENT
  Age: 60 Year
  Sex: Male
  Weight: 86 kg

DRUGS (6)
  1. VIOXX [Suspect]
     Indication: OSTEOARTHRITIS
     Route: 048
     Dates: start: 20001101, end: 20021122
  2. ASPIRIN [Concomitant]
     Indication: CARDIAC DISORDER
     Route: 048
     Dates: start: 19840601, end: 20021122
  3. [THERAPY UNSPECIFIED] [Concomitant]
     Route: 065
     Dates: start: 20000901, end: 20021122
  4. ZOCOR [Concomitant]
     Indication: OSTEOARTHRITIS
     Route: 048
     Dates: start: 19960501, end: 20021122
  5. IBUPROFEN [Concomitant]
     Route: 065
     Dates: start: 19930101, end: 20021122
  6. NAPROSYN [Concomitant]
     Route: 065
     Dates: start: 19930101, end: 20021122

REACTIONS (1)
  - MYOCARDIAL INFARCTION [None]
